FAERS Safety Report 9021839 (Version 1)
Quarter: 2013Q1

REPORT INFORMATION
  Report Type: Spontaneous
  Country: US (occurrence: US)
  Receive Date: 20130119
  Receipt Date: 20130119
  Transmission Date: 20140127
  Serious: No
  Sender: FDA-Public Use
  Company Number: US-ALLERGAN-1212222US

PATIENT
  Age: 48 Year
  Sex: Female

DRUGS (4)
  1. BOTOX? [Suspect]
     Indication: MUSCLE SPASTICITY
     Dosage: 225 UNITS, SINGLE
     Route: 030
     Dates: start: 20120511, end: 20120511
  2. BOTOX? [Suspect]
     Indication: HYPERTONIC BLADDER
     Dosage: 200 UNITS, SINGLE
     Route: 043
     Dates: start: 201204, end: 201204
  3. CYMBALTA [Concomitant]
     Indication: PRODUCT USED FOR UNKNOWN INDICATION
     Dosage: 60 MG, QD
     Route: 048
     Dates: end: 201207
  4. AMPYRA [Concomitant]
     Indication: MULTIPLE SCLEROSIS
     Dosage: 10 MG, QD
     Route: 048
     Dates: start: 2011

REACTIONS (4)
  - Off label use [Unknown]
  - Fatigue [Not Recovered/Not Resolved]
  - Cough [Not Recovered/Not Resolved]
  - Muscle spasms [Not Recovered/Not Resolved]
